FAERS Safety Report 21210925 (Version 1)
Quarter: 2022Q3

REPORT INFORMATION
  Report Type: Spontaneous
  Country: CN (occurrence: CN)
  Receive Date: 20220815
  Receipt Date: 20220815
  Transmission Date: 20221027
  Serious: Yes (Hospitalization, Other)
  Sender: FDA-Public Use
  Company Number: CN-SA-SAC20220809000010

PATIENT
  Age: 35 Year
  Sex: Female
  Weight: 46 kg

DRUGS (3)
  1. SERTRALINE HYDROCHLORIDE [Suspect]
     Active Substance: SERTRALINE HYDROCHLORIDE
     Indication: Anxiety disorder
     Dosage: 100 MG, QD
     Route: 048
     Dates: start: 20211013, end: 20220725
  2. ALPRAZOLAM [Suspect]
     Active Substance: ALPRAZOLAM
     Indication: Sleep disorder
     Dosage: 0.4 MG, QD
     Route: 048
     Dates: start: 20211013, end: 20220727
  3. ZOLPIDEM TARTRATE [Suspect]
     Active Substance: ZOLPIDEM TARTRATE
     Indication: Sleep disorder
     Dosage: 5 MG, QD
     Route: 048
     Dates: start: 20220704, end: 20220721

REACTIONS (3)
  - Dry mouth [Recovering/Resolving]
  - Hallucination [Recovering/Resolving]
  - Polydipsia [Recovering/Resolving]

NARRATIVE: CASE EVENT DATE: 20220720
